FAERS Safety Report 11197369 (Version 9)
Quarter: 2015Q2

REPORT INFORMATION
  Report Type: Report from Study
  Country: US (occurrence: US)
  Receive Date: 20150617
  Receipt Date: 20150617
  Transmission Date: 20150821
  Serious: Yes (Death)
  Sender: FDA-Public Use
  Company Number: US-ASTRAZENECA-2015SE59521

PATIENT
  Sex: Male

DRUGS (1)
  1. SEROQUEL XR [Suspect]
     Active Substance: QUETIAPINE FUMARATE
     Route: 048

REACTIONS (3)
  - Psychiatric symptom [Unknown]
  - Hallucination, visual [Unknown]
  - Death [Fatal]

NARRATIVE: CASE EVENT DATE: 201502
